FAERS Safety Report 8171898-9 (Version None)
Quarter: 2012Q1

REPORT INFORMATION
  Report Type: 
  Country: None (occurrence: None)
  Receive Date: 20120228
  Receipt Date: 20120217
  Transmission Date: 20120608
  Serious: Yes (Hospitalization)
  Sender: FDA-Public Use
  Company Number: DE-ROCHE-761356

PATIENT
  Sex: Female

DRUGS (15)
  1. DOXORUBICIN HYDROCHLORIDE [Suspect]
     Indication: HODGKIN'S DISEASE
     Dosage: FORM: INFUSION, LAST DOSE PRIOR TO SAE: 19 JAN 2011
     Route: 042
  2. BLEOMYCIN SULFATE [Suspect]
     Indication: HODGKIN'S DISEASE
     Dosage: LAST DOSE PRIOR TO SAE: 26 JAN 2011, FORM: INFUSION, TEMPORARILY INTERRUPTED.
     Route: 042
  3. CLEMASTIN [Concomitant]
     Route: 042
     Dates: start: 20110119, end: 20110121
  4. MESNA [Concomitant]
     Dates: start: 20110119, end: 20110119
  5. VINCRISTINE [Suspect]
     Indication: HODGKIN'S DISEASE
     Route: 042
  6. ETOPOSIDE [Suspect]
     Indication: HODGKIN'S DISEASE
     Route: 042
  7. ONDANSETRON [Concomitant]
     Dates: start: 20110119, end: 20110119
  8. RITUXAN [Suspect]
     Indication: HODGKIN'S DISEASE
     Dosage: LAST DOSE PRIOR TO SAE: 19 JAN 2011, FORM: INFUSION
     Route: 042
  9. CYCLOPHOSPHAMIDE [Suspect]
     Indication: HODGKIN'S DISEASE
     Route: 042
  10. PREDNISONE [Suspect]
     Indication: HODGKIN'S DISEASE
     Route: 042
  11. PROCARBAZINE HYDROCHLORIDE [Suspect]
     Indication: HODGKIN'S DISEASE
     Dosage: LAST DOSE PRIOR TO SAE: 26 JAN 2011.
     Route: 042
  12. CIPROFLOXACIN [Concomitant]
     Dates: start: 20110124, end: 20110128
  13. ERYTHROPOIETIN ALFA [Concomitant]
     Dates: start: 20110118, end: 20110123
  14. APREPITANT [Concomitant]
     Dates: start: 20110119, end: 20110121
  15. RANIDINE [Concomitant]
     Dates: start: 20110119, end: 20110121

REACTIONS (4)
  - PNEUMONIA [None]
  - COUGH [None]
  - RADIATION PNEUMONITIS [None]
  - DYSPNOEA [None]
